FAERS Safety Report 4278874-7 (Version None)
Quarter: 2004Q1

REPORT INFORMATION
  Report Type: 
  Country: None (occurrence: None)
  Receive Date: 20040122
  Receipt Date: 20040122
  Transmission Date: 20041129
  Serious: Yes (Other)
  Sender: FDA-Public Use
  Company Number: None

PATIENT
  Age: 9 Month
  Sex: Male
  Weight: 8.3915 kg

DRUGS (1)
  1. TAMIFLU [Suspect]
     Indication: INFLUENZA
     Dosage: 2.5 ML BID ORAL
     Route: 048
     Dates: start: 20040116, end: 20040119

REACTIONS (1)
  - DRUG HYPERSENSITIVITY [None]
